FAERS Safety Report 9734141 (Version 2)
Quarter: 2013Q4

REPORT INFORMATION
  Report Type: Spontaneous
  Country: JP (occurrence: JP)
  Receive Date: 20131205
  Receipt Date: 20131231
  Transmission Date: 20140711
  Serious: Yes (Other)
  Sender: FDA-Public Use
  Company Number: JP-BRISTOL-MYERS SQUIBB COMPANY-19877612

PATIENT
  Age: 66 Year
  Sex: Female

DRUGS (3)
  1. ABILIFY TABS [Suspect]
     Indication: SCHIZOPHRENIA
     Dosage: 12APR-23APR-ABILIFY TABS 3MG. ?24APR-11JUL-DOSE INCREASED TO 6MG?12JUL-DOSE DECREASED TO 3MG
     Route: 048
     Dates: start: 20130412, end: 20130717
  2. CYMBALTA [Concomitant]
     Dosage: 1 DF: CAPSULE
  3. SULPIRIDE [Concomitant]

REACTIONS (1)
  - Pancytopenia [Recovered/Resolved]
